FAERS Safety Report 15799557 (Version 2)
Quarter: 2019Q1

REPORT INFORMATION
  Report Type: Spontaneous
  Country: RS (occurrence: RS)
  Receive Date: 20190108
  Receipt Date: 20190122
  Transmission Date: 20190417
  Serious: Yes (Other)
  Sender: FDA-Public Use
  Company Number: RS-ACCORD-100599

PATIENT
  Sex: Female

DRUGS (3)
  1. GLUCOSE [Concomitant]
     Active Substance: DEXTROSE
     Dates: start: 201804
  2. CISPLATIN. [Suspect]
     Active Substance: CISPLATIN
     Indication: METASTASES TO OVARY
     Dosage: DISSOLVED IN 1000 ML OF 5% GLUCOSE, HEATED TO 42 DEGREE C FOR AN HOUR
     Dates: start: 201804
  3. CISPLATIN. [Suspect]
     Active Substance: CISPLATIN
     Indication: OVARIAN EPITHELIAL CANCER
     Dosage: DISSOLVED IN 1000 ML OF 5 PERCENT GLUCOSE, HEATED TO 42 DEGREE C
     Dates: start: 201804

REACTIONS (3)
  - Full blood count abnormal [Unknown]
  - Blood pressure decreased [Unknown]
  - Haemoglobin decreased [Unknown]
